FAERS Safety Report 5373090-X (Version None)
Quarter: 2007Q2

REPORT INFORMATION
  Report Type: 
  Country: None (occurrence: None)
  Receive Date: 20070619
  Receipt Date: 20070412
  Transmission Date: 20071010
  Serious: No
  Sender: FDA-Public Use
  Company Number: 2007US000955

PATIENT
  Age: 67 Year
  Sex: Female

DRUGS (7)
  1. VESICARE [Suspect]
     Indication: BLADDER PAIN
     Dosage: 5 MG, UNK, ORAL
     Route: 048
     Dates: start: 20060801, end: 20070301
  2. CRESTOR [Concomitant]
  3. LEXAPRO [Concomitant]
  4. ADVAIR DISKUS 100/50 [Concomitant]
  5. PRILOSEC [Concomitant]
  6. MOBIC [Concomitant]
  7. METFORMIN(METFORMIN HYDROCHLORIDE) [Concomitant]

REACTIONS (2)
  - DENTAL CARIES [None]
  - DRY MOUTH [None]
